FAERS Safety Report 15074226 (Version 1)
Quarter: 2018Q2

REPORT INFORMATION
  Report Type: Report from Study
  Country: US (occurrence: US)
  Receive Date: 20180627
  Receipt Date: 20180627
  Transmission Date: 20180711
  Serious: Yes (Other)
  Sender: FDA-Public Use
  Company Number: US-BAYER-2018-114755

PATIENT
  Age: 69 Year
  Sex: Male

DRUGS (1)
  1. STIVARGA [Suspect]
     Active Substance: REGORAFENIB
     Indication: COLON CANCER
     Dosage: 80 MG DAILY 21 DAYS ON 7 DAYS OFF
     Route: 048
     Dates: start: 20180611

REACTIONS (13)
  - Decreased appetite [Not Recovered/Not Resolved]
  - Weight decreased [Not Recovered/Not Resolved]
  - Fatigue [Recovering/Resolving]
  - Bowel movement irregularity [Recovered/Resolved]
  - Abdominal pain [Recovering/Resolving]
  - Off label use [None]
  - Blood pressure increased [Not Recovered/Not Resolved]
  - Abdominal discomfort [Recovering/Resolving]
  - Constipation [Not Recovered/Not Resolved]
  - Dysphonia [None]
  - Neuropathy peripheral [Not Recovered/Not Resolved]
  - Diarrhoea [Not Recovered/Not Resolved]
  - Early satiety [Not Recovered/Not Resolved]

NARRATIVE: CASE EVENT DATE: 201806
